FAERS Safety Report 9919382 (Version 1)
Quarter: 2014Q1

REPORT INFORMATION
  Report Type: Spontaneous
  Country: CO (occurrence: CO)
  Receive Date: 20140224
  Receipt Date: 20140224
  Transmission Date: 20141002
  Serious: Yes (Death)
  Sender: FDA-Public Use
  Company Number: CO-PFIZER INC-2014050730

PATIENT
  Age: 65 Year
  Sex: Female

DRUGS (1)
  1. NORVAS [Suspect]
     Dosage: 5 MG, UNK
     Route: 048

REACTIONS (1)
  - Neoplasm malignant [Fatal]
